FAERS Safety Report 9679284 (Version 2)
Quarter: 2013Q4

REPORT INFORMATION
  Report Type: Report from Study
  Country: CA (occurrence: CA)
  Receive Date: 20131109
  Receipt Date: 20131120
  Transmission Date: 20140711
  Serious: Yes (Other)
  Sender: FDA-Public Use
  Company Number: CA-ROCHE-1301211

PATIENT
  Age: 68 Year
  Sex: Female
  Weight: 50 kg

DRUGS (7)
  1. RITUXAN [Suspect]
     Indication: PEMPHIGUS
     Dosage: LAST DOSE PRIOR TO SAE: 20/SEP/2012.
     Route: 042
     Dates: start: 20111209
  2. DIPHENHYDRAMINE HCL [Concomitant]
     Indication: PREMEDICATION
     Route: 048
     Dates: start: 20111209
  3. ACETAMINOPHEN [Concomitant]
     Indication: PREMEDICATION
     Route: 048
     Dates: start: 20111209
  4. METHYLPREDNISOLONE [Concomitant]
     Indication: PREMEDICATION
     Route: 042
     Dates: start: 20111209
  5. ACTONEL [Concomitant]
  6. NYSTATIN [Concomitant]
     Indication: PEMPHIGUS
  7. ZOPICLONE [Concomitant]

REACTIONS (2)
  - Rheumatoid arthritis [Not Recovered/Not Resolved]
  - Weight increased [Unknown]
